FAERS Safety Report 18643966 (Version 2)
Quarter: 2020Q4

REPORT INFORMATION
  Report Type: Spontaneous
  Country: KR (occurrence: KR)
  Receive Date: 20201221
  Receipt Date: 20201222
  Transmission Date: 20210114
  Serious: Yes (Hospitalization)
  Sender: FDA-Public Use
  Company Number: KR-CELGENEUS-KOR-20201205717

PATIENT
  Age: 61 Year
  Sex: Female

DRUGS (1)
  1. AZACITIDINE. [Suspect]
     Active Substance: AZACITIDINE
     Indication: PRODUCT USED FOR UNKNOWN INDICATION
     Route: 058
     Dates: start: 20100308, end: 20100314

REACTIONS (4)
  - Swelling [Unknown]
  - Injection site pain [Unknown]
  - Erythema [Unknown]
  - Panniculitis [Unknown]

NARRATIVE: CASE EVENT DATE: 20100308
